FAERS Safety Report 21802356 (Version 1)
Quarter: 2022Q4

REPORT INFORMATION
  Report Type: Report from Study
  Country: US (occurrence: US)
  Receive Date: 20221230
  Receipt Date: 20221230
  Transmission Date: 20230113
  Serious: No
  Sender: FDA-Public Use
  Company Number: US-ACORDA-ACO_173367_2022

PATIENT
  Age: 61 Year
  Sex: Male

DRUGS (5)
  1. INBRIJA [Suspect]
     Active Substance: LEVODOPA
     Indication: Parkinson^s disease
     Dosage: 2 DOSAGE FORM (84 MILLIGRAM), PRN, (NOT TO EXCEED 5 DOSES A DAY)
     Dates: start: 202207
  2. INBRIJA [Suspect]
     Active Substance: LEVODOPA
     Indication: On and off phenomenon
     Dosage: 2 DOSAGE FORM (84 MILLIGRAM), PRN, (NOT TO EXCEED 5 DOSES A DAY)
     Dates: start: 202207
  3. INBRIJA [Suspect]
     Active Substance: LEVODOPA
     Dosage: 2 DOSAGE FORM (84 MILLIGRAM), PRN, (NOT TO EXCEED 5 DOSES A DAY)
     Dates: start: 202207
  4. GOCOVRI [Suspect]
     Active Substance: AMANTADINE
     Indication: Product used for unknown indication
     Dosage: 137 MILLIGRAM
     Route: 065
  5. RYTARY [Concomitant]
     Active Substance: CARBIDOPA\LEVODOPA
     Indication: Product used for unknown indication
     Dosage: 61.25/243 3 DOSAGE FORM, 5X/QD
     Route: 065

REACTIONS (13)
  - Therapeutic product effect variable [Unknown]
  - Product residue present [Unknown]
  - Muscle tightness [Unknown]
  - Balance disorder [Unknown]
  - Adverse event [Unknown]
  - Drug ineffective [Unknown]
  - Abdominal pain [Not Recovered/Not Resolved]
  - Dysphonia [Not Recovered/Not Resolved]
  - Dyspnoea [Unknown]
  - Pain in extremity [Unknown]
  - Cough [Not Recovered/Not Resolved]
  - Nausea [Not Recovered/Not Resolved]
  - Vomiting [Not Recovered/Not Resolved]

NARRATIVE: CASE EVENT DATE: 20220701
